FAERS Safety Report 5742646-4 (Version None)
Quarter: 2008Q2

REPORT INFORMATION
  Report Type: 
  Country: None (occurrence: None)
  Receive Date: 20080519
  Receipt Date: 20080513
  Transmission Date: 20081010
  Serious: Yes (Hospitalization, Other)
  Sender: FDA-Public Use
  Company Number: BR-BRISTOL-MYERS SQUIBB COMPANY-14192645

PATIENT
  Age: 69 Year
  Sex: Male

DRUGS (3)
  1. ABATACEPT [Suspect]
     Indication: RHEUMATOID ARTHRITIS
     Route: 042
     Dates: start: 20030417
  2. HYDROXYCHLOROQUINE SULFATE [Concomitant]
     Dates: start: 20020101
  3. PREDNISONE [Concomitant]
     Dates: start: 20020201

REACTIONS (1)
  - OSTEONECROSIS [None]
